FAERS Safety Report 6468751-5 (Version None)
Quarter: 2009Q4

REPORT INFORMATION
  Report Type: 
  Country: None (occurrence: None)
  Receive Date: 20091203
  Receipt Date: 20091201
  Transmission Date: 20100525
  Serious: Yes (Death, Other)
  Sender: FDA-Public Use
  Company Number: PL-BAYER-200928809GPV

PATIENT
  Age: 56 Year
  Sex: Male
  Weight: 64 kg

DRUGS (3)
  1. SORAFENIB [Suspect]
     Indication: METASTATIC RENAL CELL CARCINOMA
     Dosage: TOTAL DAILY DOSE: 800 MG
     Route: 048
     Dates: start: 20090529, end: 20090629
  2. KETOPROFEN [Concomitant]
     Indication: PAIN
     Dates: start: 20090101
  3. INDOMETHACIN [Concomitant]
     Indication: PYREXIA
     Dates: start: 20090520

REACTIONS (2)
  - ANAEMIA [None]
  - GENERAL PHYSICAL HEALTH DETERIORATION [None]
